FAERS Safety Report 4455934-9 (Version None)
Quarter: 2004Q3

REPORT INFORMATION
  Report Type: 
  Country: None (occurrence: None)
  Receive Date: 20040830
  Receipt Date: 20040624
  Transmission Date: 20050211
  Serious: No
  Sender: FDA-Public Use
  Company Number: 207498

PATIENT
  Age: 17 Year
  Sex: Female

DRUGS (2)
  1. XOLAIR [Suspect]
     Indication: ASTHMA
     Dosage: 3 ML, Q2W,
     Dates: start: 20040101
  2. CORTICOSTEROID (UNK INGREDIENTS) (CORTICOSTEROID NOS) [Concomitant]

REACTIONS (1)
  - HYPOTRICHOSIS [None]
